FAERS Safety Report 16550870 (Version 1)
Quarter: 2019Q3

REPORT INFORMATION
  Report Type: Spontaneous
  Country: AT (occurrence: AT)
  Receive Date: 20190710
  Receipt Date: 20190710
  Transmission Date: 20191004
  Serious: Yes (Hospitalization)
  Sender: FDA-Public Use
  Company Number: AT-TEVA-2019-AT-1074125

PATIENT
  Sex: Female

DRUGS (11)
  1. SEROQUEL [Suspect]
     Active Substance: QUETIAPINE FUMARATE
     Dosage: 400 MG FOR 42 DAYS
     Route: 065
     Dates: start: 20190506, end: 20190617
  2. FLUOXETINE HYDROCHLORIDE. [Suspect]
     Active Substance: FLUOXETINE HYDROCHLORIDE
     Dosage: 60 MILLIGRAM
     Dates: start: 20190424
  3. SEROQUEL [Suspect]
     Active Substance: QUETIAPINE FUMARATE
     Dosage: 200 MG
     Dates: start: 2012
  4. QUILONORM RETARD [Suspect]
     Active Substance: LITHIUM CARBONATE
     Dosage: 675-450 MG, DOSE TAPERING
     Route: 065
     Dates: start: 20190520, end: 20190528
  5. QUILONORM RETARD [Suspect]
     Active Substance: LITHIUM CARBONATE
     Dosage: 225 MG FOR 6 DAYS
     Route: 065
     Dates: start: 20190529, end: 20190604
  6. QUILONORM RETARD [Suspect]
     Active Substance: LITHIUM CARBONATE
     Route: 065
     Dates: start: 20190426, end: 20190509
  7. SEROQUEL XR [Suspect]
     Active Substance: QUETIAPINE FUMARATE
     Dosage: 200 MG
     Route: 065
     Dates: start: 20190618
  8. SEROQUEL [Suspect]
     Active Substance: QUETIAPINE FUMARATE
     Dosage: 300 MG FOR 2 DAYS
     Dates: start: 20190503, end: 20190505
  9. QUILONORM RETARD [Suspect]
     Active Substance: LITHIUM CARBONATE
     Dosage: 900 MG
     Route: 065
     Dates: start: 20190510, end: 20190510
  10. QUILONORM RETARD [Suspect]
     Active Substance: LITHIUM CARBONATE
     Route: 065
     Dates: start: 2014
  11. FLUOXETINE HYDROCHLORIDE. [Suspect]
     Active Substance: FLUOXETINE HYDROCHLORIDE
     Dosage: 40 MG
     Route: 065
     Dates: start: 2014

REACTIONS (2)
  - Restlessness [Recovered/Resolved]
  - Tremor [Recovered/Resolved]

NARRATIVE: CASE EVENT DATE: 20190506
